FAERS Safety Report 5528583-9 (Version None)
Quarter: 2007Q4

REPORT INFORMATION
  Report Type: 
  Country: None (occurrence: None)
  Receive Date: 20071126
  Receipt Date: 20071109
  Transmission Date: 20080405
  Serious: Yes (Other)
  Sender: FDA-Public Use
  Company Number: 2007S1011523

PATIENT
  Age: 3 Year
  Sex: Male

DRUGS (5)
  1. CARBOPLATIN [Suspect]
     Indication: RETINOBLASTOMA
  2. ETOPOSIDE [Suspect]
     Indication: RETINOBLASTOMA
  3. VINCRISTINE [Suspect]
     Indication: RETINOBLASTOMA
  4. RADIOTHERAPY [Suspect]
  5. CARBOPLATIN [Concomitant]

REACTIONS (2)
  - CONJUNCTIVAL MELANOMA [None]
  - MALIGNANT MELANOMA [None]
